FAERS Safety Report 16420679 (Version 2)
Quarter: 2022Q2

REPORT INFORMATION
  Report Type: Spontaneous
  Country: CA (occurrence: CA)
  Receive Date: 20190612
  Receipt Date: 20220420
  Transmission Date: 20220720
  Serious: Yes (Death, Hospitalization)
  Sender: FDA-Public Use
  Company Number: CA-BAUSCH-BL-2019-016775

PATIENT
  Age: 59 Year
  Sex: Female
  Weight: 113 kg

DRUGS (9)
  1. FLUOROURACIL [Suspect]
     Active Substance: FLUOROURACIL
     Indication: Product used for unknown indication
     Route: 065
     Dates: start: 201607
  2. DOCETAXEL [Suspect]
     Active Substance: DOCETAXEL
     Indication: Neoadjuvant therapy
     Route: 042
     Dates: start: 201607
  3. CYCLOPHOSPHAMIDE [Suspect]
     Active Substance: CYCLOPHOSPHAMIDE
     Indication: Neoadjuvant therapy
     Route: 065
     Dates: start: 201607
  4. EPIRUBICIN [Suspect]
     Active Substance: EPIRUBICIN
     Indication: Neoadjuvant therapy
     Route: 065
     Dates: start: 201607
  5. ARTHROTEC [Concomitant]
     Active Substance: DICLOFENAC SODIUM\MISOPROSTOL
     Indication: Product used for unknown indication
     Dates: start: 200805
  6. LATANOPROST [Concomitant]
     Active Substance: LATANOPROST
     Indication: Product used for unknown indication
     Dates: start: 201405
  7. QUETIAPINE [Concomitant]
     Active Substance: QUETIAPINE
     Indication: Product used for unknown indication
     Dates: start: 200806
  8. SERTRALINE [Concomitant]
     Active Substance: SERTRALINE HYDROCHLORIDE
     Indication: Product used for unknown indication
     Dates: start: 200805
  9. SYNTHROID [Concomitant]
     Active Substance: LEVOTHYROXINE SODIUM
     Indication: Product used for unknown indication
     Dates: start: 200805

REACTIONS (6)
  - Neoplasm progression [Fatal]
  - Fall [Unknown]
  - Muscular weakness [Unknown]
  - Nausea [Unknown]
  - Pain [Unknown]
  - Headache [Unknown]
